FAERS Safety Report 9550535 (Version 1)
Quarter: 2013Q3

REPORT INFORMATION
  Report Type: Spontaneous
  Country: US (occurrence: US)
  Receive Date: 20130924
  Receipt Date: 20130924
  Transmission Date: 20140515
  Serious: No
  Sender: FDA-Public Use
  Company Number: US-SANOFI-AVENTIS-2013SA030012

PATIENT
  Age: 64 Year
  Sex: Female
  Weight: 81.64 kg

DRUGS (2)
  1. AUBAGIO [Suspect]
     Indication: MULTIPLE SCLEROSIS
     Dosage: AT NIGHT
     Route: 048
     Dates: start: 20130222, end: 20130416
  2. AUBAGIO [Suspect]
     Indication: MULTIPLE SCLEROSIS
     Route: 048

REACTIONS (7)
  - Poor quality sleep [Not Recovered/Not Resolved]
  - Circadian rhythm sleep disorder [Not Recovered/Not Resolved]
  - Vertigo [Recovered/Resolved]
  - Abdominal discomfort [Not Recovered/Not Resolved]
  - Diarrhoea [Recovered/Resolved]
  - Alopecia [Recovering/Resolving]
  - Drug dose omission [Unknown]
